FAERS Safety Report 10344254 (Version 1)
Quarter: 2014Q3

REPORT INFORMATION
  Report Type: Spontaneous
  Country: US (occurrence: US)
  Receive Date: 20140728
  Receipt Date: 20140728
  Transmission Date: 20150326
  Serious: No
  Sender: FDA-Public Use
  Company Number: 2014SP002772

PATIENT
  Sex: Female

DRUGS (3)
  1. VITAMIN B12 /06860901/ [Concomitant]
  2. FOLIC ACID. [Concomitant]
     Active Substance: FOLIC ACID
  3. METHOTREXATE [Suspect]
     Active Substance: METHOTREXATE
     Indication: RHEUMATOID ARTHRITIS

REACTIONS (4)
  - Fatigue [Unknown]
  - Joint stiffness [Unknown]
  - Anaemia [Recovering/Resolving]
  - Feeling abnormal [Unknown]
